FAERS Safety Report 5488323-9 (Version None)
Quarter: 2007Q4

REPORT INFORMATION
  Report Type: 
  Country: None (occurrence: None)
  Receive Date: 20071017
  Receipt Date: 20071016
  Transmission Date: 20080405
  Serious: Yes (Other)
  Sender: FDA-Public Use
  Company Number: A0657220A

PATIENT
  Age: 60 Year
  Sex: Male
  Weight: 85.5 kg

DRUGS (3)
  1. AVANDIA [Suspect]
     Dosage: 2MG PER DAY
     Route: 048
     Dates: start: 20070101, end: 20070522
  2. VYTORIN [Concomitant]
  3. ALTACE [Concomitant]

REACTIONS (2)
  - CHEST PAIN [None]
  - ISCHAEMIA [None]
